FAERS Safety Report 5062392-2 (Version None)
Quarter: 2006Q3

REPORT INFORMATION
  Report Type: 
  Country: None (occurrence: None)
  Receive Date: 20060726
  Receipt Date: 20060724
  Transmission Date: 20061208
  Serious: Yes (Life-Threatening)
  Sender: FDA-Public Use
  Company Number: 20004829

PATIENT
  Age: 40 Year
  Sex: Female

DRUGS (1)
  1. ZANTAC [Suspect]
     Dosage: 150MG TWICE PER DAY
     Route: 048
     Dates: start: 20050601, end: 20050601

REACTIONS (5)
  - ANAPHYLACTIC REACTION [None]
  - DIARRHOEA [None]
  - DYSPNOEA [None]
  - MALAISE [None]
  - SKIN IRRITATION [None]
